FAERS Safety Report 8341415-9 (Version None)
Quarter: 2012Q2

REPORT INFORMATION
  Report Type: 
  Country: None (occurrence: None)
  Receive Date: 20120507
  Receipt Date: 20120427
  Transmission Date: 20120825
  Serious: No
  Sender: FDA-Public Use
  Company Number: US-BAYER-2012-041947

PATIENT
  Age: 53 Year
  Sex: Male

DRUGS (8)
  1. OMEGA COMBINATION [Concomitant]
  2. LEVITRA [Suspect]
     Indication: ERECTILE DYSFUNCTION
     Dosage: 20 MG, PRN
     Route: 048
     Dates: start: 20090101, end: 20120426
  3. METFORMIN HCL [Concomitant]
  4. ALTACE [Concomitant]
  5. AVACOR [Concomitant]
  6. JANUVIA [Concomitant]
  7. GLYBURIDE [Concomitant]
  8. COREG [Concomitant]

REACTIONS (1)
  - ERECTILE DYSFUNCTION [None]
